FAERS Safety Report 7218040-6 (Version None)
Quarter: 2011Q1

REPORT INFORMATION
  Report Type: 
  Country: None (occurrence: None)
  Receive Date: 20110110
  Receipt Date: 20110104
  Transmission Date: 20110831
  Serious: Yes (Other)
  Sender: FDA-Public Use
  Company Number: US-ABBOTT-10P-163-0648262-00

PATIENT
  Sex: Female
  Weight: 66.738 kg

DRUGS (1)
  1. HUMIRA [Suspect]
     Indication: CROHN'S DISEASE
     Dates: start: 20100201

REACTIONS (3)
  - CROHN'S DISEASE [None]
  - PRE-ECLAMPSIA [None]
  - RECTAL HAEMORRHAGE [None]
